FAERS Safety Report 8050000-8 (Version None)
Quarter: 2012Q1

REPORT INFORMATION
  Report Type: 
  Country: None (occurrence: None)
  Receive Date: 20120117
  Receipt Date: 20120113
  Transmission Date: 20120608
  Serious: Yes (Other)
  Sender: FDA-Public Use
  Company Number: US-PFIZER INC-2011218786

PATIENT
  Sex: Female
  Weight: 81.6 kg

DRUGS (4)
  1. DILANTIN [Suspect]
     Dosage: 100 MG, 3X/DAY
     Route: 048
  2. FLECTOR [Suspect]
     Indication: SPINAL FRACTURE
     Dosage: UNK PATCH, UNK
     Route: 061
     Dates: end: 20110601
  3. HYDROCORTISONE [Suspect]
     Indication: SPINAL FRACTURE
     Dosage: UNK
     Route: 061
     Dates: end: 20110601
  4. DILANTIN [Suspect]
     Indication: EPILEPSY
     Dosage: 100 MG, 2X/DAY
     Route: 048

REACTIONS (3)
  - STEVENS-JOHNSON SYNDROME [None]
  - ANTICONVULSANT DRUG LEVEL BELOW THERAPEUTIC [None]
  - SPINAL FRACTURE [None]
